FAERS Safety Report 9950674 (Version 2)
Quarter: 2014Q1

REPORT INFORMATION
  Report Type: Report from Study
  Country: US (occurrence: US)
  Receive Date: 20140304
  Receipt Date: 20140304
  Transmission Date: 20141002
  Serious: No
  Sender: FDA-Public Use
  Company Number: US-ABBVIE-13P-163-1043820-00

PATIENT
  Sex: Female

DRUGS (2)
  1. HUMIRA [Suspect]
     Indication: PSORIASIS
     Route: 058
     Dates: start: 20121011, end: 201301
  2. HUMIRA [Suspect]

REACTIONS (3)
  - Feeling hot [Unknown]
  - Influenza like illness [Unknown]
  - Pruritus [Unknown]
